FAERS Safety Report 5926766-7 (Version None)
Quarter: 2008Q4

REPORT INFORMATION
  Report Type: 
  Country: None (occurrence: None)
  Receive Date: 20081017
  Receipt Date: 20081002
  Transmission Date: 20090506
  Serious: Yes (Hospitalization)
  Sender: FDA-Public Use
  Company Number: 1000001287

PATIENT
  Age: 71 Year
  Sex: Female

DRUGS (9)
  1. ESCITALOPRAM OXALATE [Suspect]
     Dates: start: 20080823, end: 20080902
  2. LANSOPRAZOLE [Suspect]
     Dosage: ORAL
     Route: 048
     Dates: start: 20080814, end: 20080904
  3. SYMBICORT [Concomitant]
  4. LESCOL [Concomitant]
  5. KARDEGIC [Concomitant]
  6. SECTRAL [Concomitant]
  7. SPIRONOLACTONE [Concomitant]
  8. ALTIZIDE [Concomitant]
  9. LEXOMIL [Concomitant]

REACTIONS (4)
  - CANDIDIASIS [None]
  - PRURITUS [None]
  - RASH MACULO-PAPULAR [None]
  - SEBORRHOEIC KERATOSIS [None]
